FAERS Safety Report 9100633 (Version 1)
Quarter: 2013Q1

REPORT INFORMATION
  Report Type: Spontaneous
  Country: US (occurrence: US)
  Receive Date: 20130215
  Receipt Date: 20130215
  Transmission Date: 20140127
  Serious: Yes (Hospitalization)
  Sender: FDA-Public Use
  Company Number: US-ABBOTT-13P-163-1045400-00

PATIENT
  Age: 52 Year
  Sex: Male
  Weight: 82 kg

DRUGS (9)
  1. ERYTHROMYCIN [Suspect]
     Indication: PNEUMONIA
     Route: 042
  2. PROPRANOLOL [Concomitant]
     Indication: HYPERTENSION
  3. HYDRALAZINE HYDROCHLORIDE [Concomitant]
     Indication: HYPERTENSION
  4. FOLIC ACID [Concomitant]
     Indication: PRODUCT USED FOR UNKNOWN INDICATION
  5. VITAMIN B COMPLEX W C [Concomitant]
     Indication: PRODUCT USED FOR UNKNOWN INDICATION
  6. ALUMINUM HYDROXIDE [Concomitant]
     Indication: PRODUCT USED FOR UNKNOWN INDICATION
  7. ACETAMINOPHEN [Concomitant]
     Indication: PRODUCT USED FOR UNKNOWN INDICATION
  8. PROCHLORPERAZINE MALEATE [Concomitant]
     Indication: PRODUCT USED FOR UNKNOWN INDICATION
  9. FLURAZEPAM HYDROCHLORIDE [Concomitant]
     Indication: PRODUCT USED FOR UNKNOWN INDICATION

REACTIONS (5)
  - Deafness [Recovered/Resolved]
  - Nausea [Unknown]
  - Vomiting [Unknown]
  - Tinnitus [None]
  - Deafness neurosensory [None]
